FAERS Safety Report 8015513-3 (Version None)
Quarter: 2011Q4

REPORT INFORMATION
  Report Type: 
  Country: None (occurrence: None)
  Receive Date: 20111227
  Receipt Date: 20111227
  Transmission Date: 20120403
  Serious: Yes (Disabling)
  Sender: FDA-Public Use
  Company Number: None

PATIENT
  Sex: Male
  Weight: 70.3075 kg

DRUGS (2)
  1. LASIX [Suspect]
     Indication: FLUID RETENTION
     Dosage: 20 MG 1 OR 2/ DAY
     Dates: start: 20110730
  2. LASIX [Suspect]
     Indication: FLUID RETENTION
     Dosage: 20 MG 1 OR 2/ DAY
     Dates: start: 20110716

REACTIONS (2)
  - PARAESTHESIA [None]
  - PAIN IN EXTREMITY [None]
